FAERS Safety Report 4292821-3 (Version None)
Quarter: 2004Q1

REPORT INFORMATION
  Report Type: 
  Country: None (occurrence: None)
  Receive Date: 20040210
  Receipt Date: 20040129
  Transmission Date: 20041129
  Serious: Yes (Other)
  Sender: FDA-Public Use
  Company Number: NSADSS2003010811

PATIENT
  Age: 66 Year
  Sex: Male
  Weight: 81.6475 kg

DRUGS (24)
  1. REMICADE [Suspect]
     Indication: RHEUMATOID ARTHRITIS
     Dosage: SEE IMAGE
     Route: 041
     Dates: start: 20010423, end: 20010423
  2. REMICADE [Suspect]
     Indication: RHEUMATOID ARTHRITIS
     Dosage: SEE IMAGE
     Route: 041
     Dates: start: 20011001, end: 20011001
  3. REMICADE [Suspect]
     Indication: RHEUMATOID ARTHRITIS
     Dosage: SEE IMAGE
     Route: 041
     Dates: start: 20011031, end: 20011031
  4. REMICADE [Suspect]
     Indication: RHEUMATOID ARTHRITIS
     Dosage: SEE IMAGE
     Route: 041
     Dates: start: 20020415, end: 20020415
  5. REMICADE [Suspect]
     Indication: RHEUMATOID ARTHRITIS
     Dosage: SEE IMAGE
     Route: 041
     Dates: start: 20020729, end: 20020729
  6. REMICADE [Suspect]
     Indication: RHEUMATOID ARTHRITIS
     Dosage: SEE IMAGE
     Route: 041
     Dates: start: 20020916, end: 20020916
  7. REMICADE [Suspect]
     Indication: RHEUMATOID ARTHRITIS
     Dosage: SEE IMAGE
     Route: 041
     Dates: start: 20021119, end: 20021119
  8. REMICADE [Suspect]
     Indication: RHEUMATOID ARTHRITIS
     Dosage: SEE IMAGE
     Route: 041
     Dates: start: 20030114, end: 20030114
  9. REMICADE [Suspect]
     Indication: RHEUMATOID ARTHRITIS
     Dosage: SEE IMAGE
     Route: 041
     Dates: start: 20030204
  10. VISTIDE [Suspect]
     Indication: LYMPHOMA
  11. METHOTREXATE SODIUM [Concomitant]
  12. PREDNISONE [Concomitant]
  13. ENBREL [Concomitant]
  14. VIOXX [Concomitant]
  15. CALCIUM (CALCIUM) [Concomitant]
  16. MULTIVITAMIN (MULTIVITAMINS) [Concomitant]
  17. TOPROL (METOPROLOL SUCCINATE) [Concomitant]
  18. COZAAR [Concomitant]
  19. VITAMIN E [Concomitant]
  20. DARVOCET (PROPACET) [Concomitant]
  21. PROSCAR [Concomitant]
  22. ACTONEL [Concomitant]
  23. ARAVA [Concomitant]
  24. VITAMIN D [Concomitant]

REACTIONS (8)
  - B-CELL LYMPHOMA [None]
  - EPSTEIN-BARR VIRUS INFECTION [None]
  - JOINT STIFFNESS [None]
  - OEDEMA PERIPHERAL [None]
  - OSTEOPENIA [None]
  - STOMATITIS [None]
  - THERAPEUTIC RESPONSE DECREASED [None]
  - UVEITIS [None]
